FAERS Safety Report 8581630-2 (Version None)
Quarter: 2012Q3

REPORT INFORMATION
  Report Type: 
  Country: None (occurrence: None)
  Receive Date: 20120809
  Receipt Date: 20120717
  Transmission Date: 20120928
  Serious: No
  Sender: FDA-Public Use
  Company Number: US-BAYER-2012-070600

PATIENT
  Age: 83 Year
  Sex: Male
  Weight: 110.66 kg

DRUGS (17)
  1. NAPROXEN (ALEVE) [Suspect]
     Indication: ARTHRITIS
     Dosage: 1 DF, BID
     Route: 048
     Dates: start: 20120508
  2. NOVOLOG [Concomitant]
  3. DIURETICS [Concomitant]
  4. LOVAZA [Concomitant]
  5. LIPITOR [Concomitant]
  6. ASPIRIN [Concomitant]
  7. FERREX [Concomitant]
  8. LOPRESSOR [Concomitant]
  9. PLENDIL [Concomitant]
  10. PRILOSEC [Concomitant]
  11. ANTIHYPERTENSIVES [Concomitant]
  12. BENADRYL [Concomitant]
  13. KLOR-CON [Concomitant]
  14. LASIX [Concomitant]
  15. ATACAND [CANDESARTAN CILEXETIL,HYDROCHLOROTHIAZIDE] [Concomitant]
  16. LEVOTHROID [Concomitant]
  17. ALEVE (CAPLET) [Suspect]
     Indication: ARTHRITIS
     Dosage: 1 DF, PRN
     Route: 048
     Dates: start: 20120508

REACTIONS (2)
  - RASH [None]
  - URTICARIA [None]
